FAERS Safety Report 4979551-7 (Version None)
Quarter: 2006Q2

REPORT INFORMATION
  Report Type: 
  Country: None (occurrence: None)
  Receive Date: 20060418
  Receipt Date: 20060329
  Transmission Date: 20061013
  Serious: Yes (Other)
  Sender: FDA-Public Use
  Company Number: FR200603002756

PATIENT
  Age: 63 Year
  Sex: Female

DRUGS (3)
  1. RALOXIFENE HCL [Suspect]
     Indication: OSTEOPOROSIS
     Dosage: 60 MG, DAILY (1/D), ORAL
     Route: 048
     Dates: start: 20000101, end: 20060119
  2. VASTAREL (TRIMETAZIDINE HYDROCHLORIDE) [Concomitant]
  3. TRIVASTAL (PIRIBEDIL) [Concomitant]

REACTIONS (2)
  - MENINGIOMA [None]
  - VERTIGO [None]
